FAERS Safety Report 8289658-7 (Version None)
Quarter: 2012Q2

REPORT INFORMATION
  Report Type: 
  Country: None (occurrence: None)
  Receive Date: 20120417
  Receipt Date: 20120411
  Transmission Date: 20120825
  Serious: Yes (Life-Threatening, Hospitalization)
  Sender: FDA-Public Use
  Company Number: US-SANOFI-AVENTIS-2012SA025451

PATIENT
  Age: 67 Year
  Sex: Male
  Weight: 67.3 kg

DRUGS (13)
  1. COREG [Concomitant]
     Dates: start: 20080101
  2. BLINDED THERAPY [Suspect]
     Route: 065
     Dates: start: 20120327
  3. FLUOROURACIL [Suspect]
     Dosage: 46-48 HOURS
     Route: 041
     Dates: start: 20120327
  4. XANAX [Concomitant]
     Dates: start: 20120301
  5. DIGOXIN [Concomitant]
     Dates: start: 20080101
  6. ULTRAM [Concomitant]
     Dates: start: 20090212
  7. AMIODARONE HCL [Concomitant]
     Dates: start: 20080101
  8. TAGAMET [Concomitant]
     Dates: start: 20100302
  9. OXALIPLATIN [Suspect]
     Route: 042
     Dates: start: 20120327, end: 20120327
  10. FLUOROURACIL [Suspect]
     Route: 040
     Dates: start: 20120327, end: 20120327
  11. NITROGLYCERIN [Concomitant]
     Dates: start: 20080101
  12. LEUCOVORIN CALCIUM [Suspect]
     Route: 042
     Dates: start: 20120327
  13. DABIGATRAN ETEXILATE [Concomitant]
     Dates: start: 20080101

REACTIONS (1)
  - ATRIAL FIBRILLATION [None]
